FAERS Safety Report 7592349-9 (Version None)
Quarter: 2011Q3

REPORT INFORMATION
  Report Type: 
  Country: None (occurrence: None)
  Receive Date: 20110706
  Receipt Date: 20110628
  Transmission Date: 20111222
  Serious: Yes (Other)
  Sender: FDA-Public Use
  Company Number: US-JNJFOC-20110613234

PATIENT
  Sex: Male
  Weight: 70.31 kg

DRUGS (3)
  1. CONCERTA [Suspect]
     Indication: ATTENTION DEFICIT/HYPERACTIVITY DISORDER
     Route: 048
     Dates: start: 20101201, end: 20110301
  2. CONCERTA [Suspect]
     Route: 048
     Dates: start: 20110301, end: 20110401
  3. CONCERTA [Suspect]
     Route: 048
     Dates: start: 20110401, end: 20110502

REACTIONS (7)
  - CHEST PAIN [None]
  - DYSPNOEA [None]
  - FEELING JITTERY [None]
  - LOSS OF CONSCIOUSNESS [None]
  - VESTIBULAR DISORDER [None]
  - ENDOLYMPHATIC HYDROPS [None]
  - INCORRECT DOSE ADMINISTERED [None]
